FAERS Safety Report 19112727 (Version 1)
Quarter: 2021Q2

REPORT INFORMATION
  Report Type: Spontaneous
  Country: US (occurrence: US)
  Receive Date: 20210409
  Receipt Date: 20210409
  Transmission Date: 20210717
  Serious: No
  Sender: FDA-Public Use
  Company Number: None

PATIENT
  Age: 56 Year
  Sex: Female

DRUGS (33)
  1. CEPHALEXIN. [Concomitant]
     Active Substance: CEPHALEXIN
  2. LEVOTHYROXIN [Concomitant]
     Active Substance: LEVOTHYROXINE
  3. OXYCODONE AND ACETAMINOPHEN [Concomitant]
     Active Substance: ACETAMINOPHEN\OXYCODONE HYDROCHLORIDE
  4. OXYCODONE [Concomitant]
     Active Substance: OXYCODONE
  5. CLINDAMYCIN. [Concomitant]
     Active Substance: CLINDAMYCIN
  6. MELOXICAM. [Concomitant]
     Active Substance: MELOXICAM
  7. METHOTREXATE. [Concomitant]
     Active Substance: METHOTREXATE
  8. TIZANIDINE. [Concomitant]
     Active Substance: TIZANIDINE
  9. ALBUTEROL AER [Concomitant]
     Active Substance: ALBUTEROL
  10. CLONAZEPAM. [Concomitant]
     Active Substance: CLONAZEPAM
  11. DILTIAZEM. [Concomitant]
     Active Substance: DILTIAZEM
  12. DOXYCYCL HYC [Concomitant]
  13. ENOXAPARIN [Concomitant]
     Active Substance: ENOXAPARIN
  14. GABAPENTIN. [Concomitant]
     Active Substance: GABAPENTIN
  15. TRINTELLIX [Concomitant]
     Active Substance: VORTIOXETINE HYDROBROMIDE
  16. DESVENLAFAX ER [Concomitant]
  17. METHYLPRED [Concomitant]
     Active Substance: METHYLPREDNISOLONE
  18. ROSUVASTATIN. [Concomitant]
     Active Substance: ROSUVASTATIN
  19. HUMIRA [Suspect]
     Active Substance: ADALIMUMAB
     Indication: CROHN^S DISEASE
     Route: 058
     Dates: start: 20200702
  20. ADVAIR DISKU [Concomitant]
  21. FOLIC ACID. [Concomitant]
     Active Substance: FOLIC ACID
  22. PRENATAL [Concomitant]
     Active Substance: VITAMINS
  23. ALBUTEROL HFA [Concomitant]
     Active Substance: ALBUTEROL SULFATE
  24. CYANOCOBALAM [Concomitant]
     Active Substance: CYANOCOBALAMIN
  25. HYDROCO/APAP [Concomitant]
     Active Substance: ACETAMINOPHEN\HYDROCODONE
  26. LAMOTRIGINE. [Concomitant]
     Active Substance: LAMOTRIGINE
  27. TRAZODONE [Concomitant]
     Active Substance: TRAZODONE HYDROCHLORIDE
  28. ZALEPLON. [Concomitant]
     Active Substance: ZALEPLON
  29. ACETAMINOPHE [Concomitant]
  30. AMITRIPTYLIN [Concomitant]
     Active Substance: AMITRIPTYLINE
  31. RISPERIDONE. [Concomitant]
     Active Substance: RISPERIDONE
  32. TOPIRAMATE. [Concomitant]
     Active Substance: TOPIRAMATE
  33. VITAMIN D [Concomitant]
     Active Substance: VITAMIN D NOS

REACTIONS (1)
  - Knee arthroplasty [None]

NARRATIVE: CASE EVENT DATE: 20201206
